FAERS Safety Report 8758003 (Version 5)
Quarter: 2014Q1

REPORT INFORMATION
  Report Type: Spontaneous
  Country: ES (occurrence: ES)
  Receive Date: 20120828
  Receipt Date: 20140221
  Transmission Date: 20141002
  Serious: Yes (Other)
  Sender: FDA-Public Use
  Company Number: ES-AMGEN-ESPSP2012053528

PATIENT
  Age: 60 Year
  Sex: Female
  Weight: 68 kg

DRUGS (9)
  1. ENBREL [Suspect]
     Indication: RHEUMATOID ARTHRITIS
     Dosage: 50 MG, WEEKLY
     Route: 058
     Dates: start: 20120501, end: 20121002
  2. CEMIDON [Concomitant]
     Indication: TUBERCULOSIS
     Dosage: 300 MG, AT BREAKFAST
     Route: 048
     Dates: start: 201205, end: 201207
  3. METHOTREXATE [Concomitant]
     Indication: RHEUMATOID ARTHRITIS
     Dosage: 3 TABLETS / WEEK, AT THE SAME TIME OF ENBREL
     Route: 048
     Dates: start: 201205, end: 20121002
  4. ACFOL [Concomitant]
     Indication: RHEUMATOID ARTHRITIS
     Dosage: ADMINISTERED THE DAY AFTER THE ENBREL INJECTION.
     Route: 048
     Dates: start: 201205
  5. CYMBALTA [Concomitant]
     Indication: DEPRESSION
     Dosage: 500 MG, AT BREAKFAST
     Route: 048
     Dates: start: 2011
  6. ORFIDAL [Concomitant]
     Indication: ANXIETY
     Dosage: 1 MG, AT BREAKFAST
     Route: 048
  7. ORFIDAL [Concomitant]
     Indication: INSOMNIA
  8. FOSAVANCE [Concomitant]
     Indication: BLOOD CALCIUM
     Dosage: 1 TABLET WEEKLY
     Route: 048
     Dates: start: 201008
  9. TERMALGIN [Concomitant]
     Indication: ANALGESIC THERAPY
     Dosage: 650 MG AS NEEDED
     Route: 048

REACTIONS (4)
  - Dizziness [Recovered/Resolved]
  - Monoplegia [Not Recovered/Not Resolved]
  - Arthritis [Not Recovered/Not Resolved]
  - Drug ineffective [Not Recovered/Not Resolved]
